FAERS Safety Report 12783870 (Version 2)
Quarter: 2016Q4

REPORT INFORMATION
  Report Type: Spontaneous
  Country: US (occurrence: US)
  Receive Date: 20160927
  Receipt Date: 20161117
  Transmission Date: 20170207
  Serious: No
  Sender: FDA-Public Use
  Company Number: US-B.I. PHARMACEUTICALS,INC./RIDGEFIELD-2016-BI-62334BP

PATIENT
  Sex: Female

DRUGS (1)
  1. COMBIVENT [Suspect]
     Active Substance: ALBUTEROL SULFATE\IPRATROPIUM BROMIDE
     Indication: CHRONIC OBSTRUCTIVE PULMONARY DISEASE
     Dosage: DOSE PER APPLICATION: 40 MCG/ 200MCG; DAILY DOSE: 80 MCG/ 400 MCG; 2 INHALATION SPRAYS OF 20 MCG/100
     Route: 055
     Dates: start: 2013

REACTIONS (2)
  - Product quality issue [Unknown]
  - Dyspnoea [Unknown]
